FAERS Safety Report 5367318-X (Version None)
Quarter: 2007Q2

REPORT INFORMATION
  Report Type: 
  Country: None (occurrence: None)
  Receive Date: 20070622
  Receipt Date: 20060413
  Transmission Date: 20071010
  Serious: No
  Sender: FDA-Public Use
  Company Number: US-ASTRAZENECA-2006UW06604

PATIENT
  Age: 78 Year
  Sex: Male
  Weight: 81.6 kg

DRUGS (3)
  1. PULMICORT RESPULES [Suspect]
     Indication: ASTHMA
     Route: 055
     Dates: start: 20060412
  2. PULMICORT RESPULES [Suspect]
     Indication: BRONCHITIS
     Route: 055
     Dates: start: 20060412
  3. XOPENEX [Suspect]
     Dates: start: 20060412

REACTIONS (2)
  - NERVOUSNESS [None]
  - TREMOR [None]
